FAERS Safety Report 7655471-4 (Version None)
Quarter: 2011Q3

REPORT INFORMATION
  Report Type: 
  Country: None (occurrence: None)
  Receive Date: 20110804
  Receipt Date: 20110727
  Transmission Date: 20111222
  Serious: Yes (Other)
  Sender: FDA-Public Use
  Company Number: AU-ASTELLAS-2011JP005221

PATIENT
  Age: 62 Year
  Sex: Female

DRUGS (3)
  1. SOLIFENACIN SUCCINATE [Suspect]
     Dosage: 5 MG, UNKNOWN/D
     Route: 065
  2. ALPHAGAN [Concomitant]
     Route: 047
  3. OVESTIN [Concomitant]
     Route: 065

REACTIONS (1)
  - DYSPNOEA [None]
